FAERS Safety Report 9876467 (Version 2)
Quarter: 2014Q1

REPORT INFORMATION
  Report Type: Other
  Country: US (occurrence: US)
  Receive Date: 20140206
  Receipt Date: 20140206
  Transmission Date: 20141002
  Serious: No
  Sender: FDA-Public Use
  Company Number: US-ACORDA-ACO_35266_2013

PATIENT
  Sex: Female

DRUGS (2)
  1. AMPYRA [Suspect]
     Indication: MULTIPLE SCLEROSIS
     Dosage: 10 MG, BID
     Dates: start: 20121211
  2. ACTHAR HP [Suspect]
     Indication: MULTIPLE SCLEROSIS
     Dosage: 80 UT/ML, QD
     Route: 058
     Dates: start: 201304, end: 201308

REACTIONS (1)
  - Dry mouth [Recovering/Resolving]
